FAERS Safety Report 9518606 (Version 2)
Quarter: 2013Q3

REPORT INFORMATION
  Report Type: Spontaneous
  Country: US (occurrence: US)
  Receive Date: 20130912
  Receipt Date: 20130927
  Transmission Date: 20140515
  Serious: Yes (Other)
  Sender: FDA-Public Use
  Company Number: PHEH2013US018917

PATIENT
  Sex: Female

DRUGS (8)
  1. RECLAST [Suspect]
     Indication: OSTEOPOROSIS
     Dosage: UNK
     Route: 042
     Dates: start: 20130605
  2. SYNTHROID [Concomitant]
     Indication: THYROID DISORDER
     Dosage: UNK UKN, UNK
  3. PRAVASTATIN [Concomitant]
     Indication: BLOOD CHOLESTEROL ABNORMAL
     Dosage: UNK UKN, UNK
  4. METFORMIN [Concomitant]
     Indication: HYPOGLYCAEMIA
     Dosage: UNK UKN, UNK
     Route: 048
  5. ANTIHYPERTENSIVES [Concomitant]
     Indication: HYPERTENSION
     Dosage: UNK UKN, UNK
  6. VITAMIN B [Concomitant]
     Indication: SUPPLEMENTATION THERAPY
  7. VITAMIN D [Concomitant]
     Indication: SUPPLEMENTATION THERAPY
     Dosage: UNK UKN, UNK
  8. CALCIUM [Concomitant]
     Indication: SUPPLEMENTATION THERAPY
     Dosage: UNK UKN, TID

REACTIONS (11)
  - Phaeochromocytoma [Unknown]
  - Hyperhidrosis [Unknown]
  - Asthenia [Unknown]
  - Malaise [Unknown]
  - Photopsia [Unknown]
  - Loss of consciousness [Unknown]
  - Depression [Unknown]
  - Influenza like illness [Unknown]
  - Dehydration [Unknown]
  - Bone pain [Unknown]
  - Blood calcium decreased [Unknown]
